FAERS Safety Report 5834060-8 (Version None)
Quarter: 2008Q3

REPORT INFORMATION
  Report Type: 
  Country: None (occurrence: None)
  Receive Date: 20080801
  Receipt Date: 20080801
  Transmission Date: 20090109
  Serious: No
  Sender: FDA-Public Use
  Company Number: None

PATIENT
  Age: 58 Year
  Sex: Female
  Weight: 108.8633 kg

DRUGS (2)
  1. LIPITOR [Suspect]
     Indication: BLOOD TRIGLYCERIDES INCREASED
     Dosage: ONE TABLET DAILY PO
     Route: 048
     Dates: start: 20080702, end: 20080728
  2. LIPITOR [Suspect]
     Indication: BLOOD CHOLESTEROL INCREASED
     Dosage: ONE TABLET DAILY PO
     Route: 048
     Dates: start: 20080401, end: 20080601

REACTIONS (4)
  - ABDOMINAL DISTENSION [None]
  - DIZZINESS [None]
  - HEADACHE [None]
  - NAUSEA [None]
